FAERS Safety Report 15616883 (Version 1)
Quarter: 2018Q4

REPORT INFORMATION
  Report Type: Spontaneous
  Country: FR (occurrence: FR)
  Receive Date: 20181114
  Receipt Date: 20181114
  Transmission Date: 20190205
  Serious: Yes (Other)
  Sender: FDA-Public Use
  Company Number: FR-MYLANLABS-2018M1086067

PATIENT
  Age: 22 Year
  Sex: Male
  Weight: 53 kg

DRUGS (3)
  1. PRAVASTATIN. [Suspect]
     Active Substance: PRAVASTATIN
     Indication: CORONARY ARTERY STENOSIS
     Dosage: 40 MG, QD
     Route: 048
     Dates: start: 20180130, end: 20180419
  2. AMOXICILINA/ACIDO CLAVULANICO SANDOZ [Suspect]
     Active Substance: AMOXICILLIN\CLAVULANATE POTASSIUM
     Indication: ABSCESS LIMB
     Dosage: 3 G, QD
     Route: 048
     Dates: start: 20180405, end: 20180414
  3. CIPROFLOXACIN. [Suspect]
     Active Substance: CIPROFLOXACIN
     Indication: ABSCESS LIMB
     Dosage: 1000 MG, QD
     Route: 048
     Dates: start: 20180331, end: 20180404

REACTIONS (2)
  - Hepatocellular injury [Recovering/Resolving]
  - Cholestasis [Recovering/Resolving]

NARRATIVE: CASE EVENT DATE: 20180419
